FAERS Safety Report 5274639-8 (Version None)
Quarter: 2007Q1

REPORT INFORMATION
  Report Type: 
  Country: None (occurrence: None)
  Receive Date: 20070320
  Receipt Date: 20070314
  Transmission Date: 20070707
  Serious: Yes (Other)
  Sender: FDA-Public Use
  Company Number: S07-USA-01161-01

PATIENT

DRUGS (2)
  1. NAMENDA [Suspect]
  2. ARICEPT [Concomitant]

REACTIONS (3)
  - CONDITION AGGRAVATED [None]
  - INAPPROPRIATE ANTIDIURETIC HORMONE SECRETION [None]
  - NONSPECIFIC REACTION [None]
